FAERS Safety Report 7889421-2 (Version None)
Quarter: 2011Q4

REPORT INFORMATION
  Report Type: 
  Country: None (occurrence: None)
  Receive Date: 20111103
  Receipt Date: 20111027
  Transmission Date: 20120403
  Serious: Yes (Hospitalization, Other)
  Sender: FDA-Public Use
  Company Number: GB-BAYER-2011-105867

PATIENT
  Sex: Female

DRUGS (1)
  1. GADOVIST 1.0 MMOL/ML SOLUTION FOR INJECTION PRE-F [Suspect]
     Dosage: 14 ML, ONCE
     Route: 042
     Dates: start: 20111025, end: 20111025

REACTIONS (5)
  - PULMONARY OEDEMA [None]
  - CHEST DISCOMFORT [None]
  - SWELLING [None]
  - PRURITUS [None]
  - URTICARIA [None]
